FAERS Safety Report 19928311 (Version 1)
Quarter: 2021Q4

REPORT INFORMATION
  Report Type: Spontaneous
  Country: US (occurrence: US)
  Receive Date: 20211006
  Receipt Date: 20211006
  Transmission Date: 20220303
  Serious: No
  Sender: FDA-Public Use
  Company Number: None

PATIENT
  Age: 53 Year
  Sex: Male
  Weight: 107.1 kg

DRUGS (2)
  1. IVERMECTIN [Suspect]
     Active Substance: IVERMECTIN
     Indication: COVID-19
     Dosage: ?          QUANTITY:6 CAPSULE(S);
     Route: 048
     Dates: start: 20211001, end: 20211002
  2. METOPROLOL [Concomitant]
     Active Substance: METOPROLOL

REACTIONS (3)
  - Product use issue [None]
  - Product prescribing error [None]
  - Product preparation error [None]

NARRATIVE: CASE EVENT DATE: 20211001
